FAERS Safety Report 9401488 (Version 2)
Quarter: 2013Q3

REPORT INFORMATION
  Report Type: Spontaneous
  Country: DK (occurrence: DK)
  Receive Date: 20130716
  Receipt Date: 20130722
  Transmission Date: 20140515
  Serious: Yes (Life-Threatening, Hospitalization, Other)
  Sender: FDA-Public Use
  Company Number: DK-ROCHE-1247892

PATIENT
  Age: 68 Year
  Sex: Female

DRUGS (4)
  1. AVASTIN [Suspect]
     Indication: COLON CANCER
     Route: 042
     Dates: start: 20130326, end: 20130528
  2. 5-FLUOROURACIL [Concomitant]
     Indication: COLON CANCER
     Route: 042
     Dates: start: 20130220
  3. FOLINIC ACID [Concomitant]
     Indication: COLON CANCER
     Route: 042
     Dates: start: 20130220
  4. IRINOTECAN [Concomitant]
     Indication: COLON CANCER
     Route: 042
     Dates: start: 20130220

REACTIONS (3)
  - Medical device complication [Recovering/Resolving]
  - Musculoskeletal disorder [Recovering/Resolving]
  - Wound infection [Recovering/Resolving]
